FAERS Safety Report 4659686-9 (Version None)
Quarter: 2005Q2

REPORT INFORMATION
  Report Type: 
  Country: None (occurrence: None)
  Receive Date: 20050420
  Receipt Date: 20050307
  Transmission Date: 20051028
  Serious: No
  Sender: FDA-Public Use
  Company Number: PHEH2005US02835

PATIENT
  Age: 74 Year
  Sex: Female

DRUGS (4)
  1. ENABLEX [Suspect]
     Indication: INCONTINENCE
     Dosage: 7.5 MG QD
     Dates: start: 20050305
  2. NORMODYNE [Concomitant]
  3. DIURETICS [Concomitant]
  4. LANOXIN [Concomitant]

REACTIONS (2)
  - DRY MOUTH [None]
  - FATIGUE [None]
